FAERS Safety Report 15409767 (Version 2)
Quarter: 2020Q1

REPORT INFORMATION
  Report Type: Spontaneous
  Country: GB (occurrence: GB)
  Receive Date: 20180920
  Receipt Date: 20200123
  Transmission Date: 20200409
  Serious: Yes (Other)
  Sender: FDA-Public Use
  Company Number: PHHY2018GB102843

PATIENT
  Age: 41 Year
  Sex: Female
  Weight: 100 kg

DRUGS (1)
  1. CO-AMOXICLAV 500/125MG TABLETS [Suspect]
     Active Substance: AMOXICILLIN\CLAVULANATE POTASSIUM
     Indication: PRODUCT USED FOR UNKNOWN INDICATION
     Dosage: UNK (500 MG/ 125 MG)
     Route: 065
     Dates: start: 20180829

REACTIONS (1)
  - Procedural vomiting [Recovering/Resolving]

NARRATIVE: CASE EVENT DATE: 20180831
